FAERS Safety Report 18036034 (Version 1)
Quarter: 2020Q3

REPORT INFORMATION
  Report Type: Spontaneous
  Country: FR (occurrence: FR)
  Receive Date: 20200717
  Receipt Date: 20200717
  Transmission Date: 20201103
  Serious: Yes (Hospitalization)
  Sender: FDA-Public Use
  Company Number: FR-TEVA-2020-FR-1800326

PATIENT
  Age: 55 Year
  Sex: Female

DRUGS (13)
  1. PREGABALINE [Concomitant]
     Active Substance: PREGABALIN
  2. FUMAFER [Concomitant]
     Active Substance: FERROUS FUMARATE
  3. ATORVASTATINE [Suspect]
     Active Substance: ATORVASTATIN
     Indication: DYSLIPIDAEMIA
     Dosage: 80 MG
     Route: 048
     Dates: start: 20200611
  4. VICTOZA [Concomitant]
     Active Substance: LIRAGLUTIDE
  5. PARACETAMOL [Concomitant]
     Active Substance: ACETAMINOPHEN
  6. CHOLECALCIFEROL [Concomitant]
     Active Substance: CHOLECALCIFEROL
  7. TRESIBA [Concomitant]
     Active Substance: INSULIN DEGLUDEC
  8. APROVEL [Suspect]
     Active Substance: IRBESARTAN
     Indication: HYPERTENSION
     Dosage: 150 MG
     Route: 048
     Dates: start: 20200611
  9. METOPIRONE [Suspect]
     Active Substance: METYRAPONE
     Indication: PITUITARY-DEPENDENT CUSHING^S SYNDROME
     Dosage: 500 MG
     Route: 048
     Dates: start: 20200612, end: 20200620
  10. NOVORAPID [Concomitant]
     Active Substance: INSULIN ASPART
  11. ALLOPURINOL. [Concomitant]
     Active Substance: ALLOPURINOL
  12. SALBUTAMOL [Concomitant]
     Active Substance: ALBUTEROL
  13. BUDESONIDE. [Concomitant]
     Active Substance: BUDESONIDE

REACTIONS (2)
  - Hepatic encephalopathy [Not Recovered/Not Resolved]
  - Hepatitis [Not Recovered/Not Resolved]

NARRATIVE: CASE EVENT DATE: 20200619
